FAERS Safety Report 5698146-3 (Version None)
Quarter: 2008Q2

REPORT INFORMATION
  Report Type: 
  Country: None (occurrence: None)
  Receive Date: 20080408
  Receipt Date: 20080331
  Transmission Date: 20081010
  Serious: Yes (Other)
  Sender: FDA-Public Use
  Company Number: IN-ELI_LILLY_AND_COMPANY-IN200804000134

PATIENT
  Age: 72 Year
  Sex: Female

DRUGS (2)
  1. BYETTA [Suspect]
     Dosage: 5 UG, 2/D
     Route: 058
     Dates: start: 20080327
  2. BYETTA [Suspect]
     Dosage: 5 UG, DAILY (1/D)

REACTIONS (3)
  - FEELING ABNORMAL [None]
  - HYPERTENSION [None]
  - VOMITING [None]
